FAERS Safety Report 26209542 (Version 1)
Quarter: 2025Q4

REPORT INFORMATION
  Report Type: Spontaneous
  Country: US (occurrence: US)
  Receive Date: 20251229
  Receipt Date: 20251229
  Transmission Date: 20260117
  Serious: No
  Sender: XERIS PHARMACEUTICALS
  Company Number: US-BRIAN CONNER SVP QUALITY AND CHIEF COMPLIANCE OFFICER-2025XER00874

PATIENT
  Age: 39 Year
  Sex: Female
  Weight: 92.063 kg

DRUGS (1)
  1. GVOKE [Suspect]
     Active Substance: GLUCAGON
     Indication: Type 1 diabetes mellitus
     Dosage: 1 MG, ONCE
     Route: 058
     Dates: start: 20251204

REACTIONS (3)
  - Device delivery system issue [Recovering/Resolving]
  - Device issue [Recovering/Resolving]
  - Incorrect dose administered by device [Recovering/Resolving]

NARRATIVE: CASE EVENT DATE: 20251204
